FAERS Safety Report 5129595-X (Version None)
Quarter: 2006Q4

REPORT INFORMATION
  Report Type: 
  Country: None (occurrence: None)
  Receive Date: 20061012
  Receipt Date: 20060912
  Transmission Date: 20070319
  Serious: Yes (Death, Other)
  Sender: FDA-Public Use
  Company Number: 2006018600

PATIENT
  Age: 41 Year
  Sex: Male
  Weight: 99.7913 kg

DRUGS (2)
  1. CELEBREX [Suspect]
     Indication: BACK PAIN
     Dosage: 200 MG
     Dates: start: 20020208, end: 20020211
  2. VICODIN [Concomitant]

REACTIONS (6)
  - CARDIAC ARREST [None]
  - CARDIAC FAILURE [None]
  - GASTROINTESTINAL DISORDER [None]
  - HAEMORRHAGE [None]
  - LOSS OF CONSCIOUSNESS [None]
  - MYOCARDIAL INFARCTION [None]
